FAERS Safety Report 25203222 (Version 1)
Quarter: 2025Q2

REPORT INFORMATION
  Report Type: Spontaneous
  Country: US (occurrence: None)
  Receive Date: 20250416
  Receipt Date: 20250416
  Transmission Date: 20250716
  Serious: Yes (Other)
  Sender: FDA-CTU
  Company Number: None

PATIENT
  Sex: Female

DRUGS (8)
  1. BOTOX [Suspect]
     Active Substance: ONABOTULINUMTOXINA
     Indication: Migraine
     Route: 042
     Dates: start: 20190619
  2. BOTOX [Suspect]
     Active Substance: ONABOTULINUMTOXINA
     Indication: Migraine without aura
  3. AMITRIPTYLIN TAB 50MG [Concomitant]
  4. ESCITALOPRAM [Concomitant]
     Active Substance: ESCITALOPRAM OXALATE
  5. GABAPENTIN CAP 100MG [Concomitant]
  6. LEVOTHYROXIN TAB 75MCG [Concomitant]
  7. QULIPTA TAB 30MG [Concomitant]
  8. ZYRTEC ALLGYTAB 10MG [Concomitant]

REACTIONS (1)
  - Endometriosis [None]
